FAERS Safety Report 16094939 (Version 4)
Quarter: 2019Q4

REPORT INFORMATION
  Report Type: Spontaneous
  Country: US (occurrence: US)
  Receive Date: 20190320
  Receipt Date: 20191016
  Transmission Date: 20200122
  Serious: No
  Sender: FDA-Public Use
  Company Number: US-PFIZER INC-2019123110

PATIENT
  Age: 71 Year
  Sex: Female

DRUGS (34)
  1. BIOTIN [Concomitant]
     Active Substance: BIOTIN
     Dosage: 5 MG, DAILY
     Route: 048
  2. LOSARTAN POTASSIUM. [Concomitant]
     Active Substance: LOSARTAN POTASSIUM
     Dosage: 25 MG, DAILY
     Route: 048
     Dates: start: 20180405
  3. VITAMIN E [Concomitant]
     Active Substance: .ALPHA.-TOCOPHEROL
     Dosage: 1000 IU, UNK
     Route: 048
  4. EUCRISA [Suspect]
     Active Substance: CRISABOROLE
     Indication: DERMATITIS
  5. CITRACAL [CALCIUM CITRATE;COLECALCIFEROL] [Concomitant]
     Dosage: UNK, UNK (200 TO 250 MG UNIT)
     Route: 048
  6. KRILL OIL [Concomitant]
     Active Substance: DIETARY SUPPLEMENT\KRILL OIL
     Dosage: 1 DF, 2X/DAY (1 CAPSULE TWICE DAILY)
  7. ZINC SULFATE. [Concomitant]
     Active Substance: ZINC SULFATE
     Dosage: 220 MG, ALTERNATE DAY
     Route: 048
  8. MAGNESIUM OXIDE. [Concomitant]
     Active Substance: MAGNESIUM OXIDE
     Dosage: 250 MG, UNK, (USE AS DIRECTED)
     Route: 048
  9. PROAIR HFA [Concomitant]
     Active Substance: ALBUTEROL SULFATE
     Dosage: UNK, AS NEEDED (1 TO 2 PUFFS EVERY 4 TO 6 HOURS AS NEEDED)
     Route: 055
     Dates: start: 20150903
  10. PROBIOTICS [Concomitant]
     Active Substance: PROBIOTICS NOS
     Dosage: UNK, UNK (TAKE AS DIRECTED)
  11. TURMERIC CURCUMIN [Concomitant]
     Active Substance: HERBALS\TURMERIC
     Dosage: UNK
     Route: 048
  12. ACETAMINOPHEN;HYDROCODONE [Concomitant]
     Active Substance: ACETAMINOPHEN\HYDROCODONE
     Dosage: 1 DF, 4X/DAY
     Route: 048
     Dates: start: 20151229
  13. CYCLOBENZAPRINE HCL [Concomitant]
     Active Substance: CYCLOBENZAPRINE HYDROCHLORIDE
     Dosage: 20 MG, AS NEEDED (1 TABLET BY MOUTH TWO TIMES A DAY AS NEEDED)
     Route: 048
     Dates: start: 20150804
  14. FLAXSEED OIL [LINUM USITATISSIMUM SEED OIL] [Concomitant]
     Active Substance: HERBALS\LINSEED OIL
     Dosage: 2000 MG, 1X/DAY
     Route: 048
  15. VITAMIN D 2000 [Concomitant]
     Active Substance: VITAMIN D NOS
     Dosage: 2000 IU, DAILY
  16. CENTRUM SILVER ADULTS 50+ [Concomitant]
     Active Substance: MINERALS\VITAMINS
     Dosage: UNK
  17. TRELEGY ELLIPTA [Concomitant]
     Active Substance: FLUTICASONE FUROATE\UMECLIDINIUM BROMIDE\VILANTEROL TRIFENATATE
     Dosage: UNK, UNK (100 TO 62.5 TO 25 MCG)
     Route: 055
     Dates: start: 20180405
  18. EUCRISA [Suspect]
     Active Substance: CRISABOROLE
     Indication: ECZEMA
     Dosage: UNK, 2X/DAY (APPLY 1 INCH)
     Route: 061
     Dates: start: 20180405
  19. ANORO ELLIPTA [Concomitant]
     Active Substance: UMECLIDINIUM BROMIDE\VILANTEROL TRIFENATATE
     Dosage: 1 DF, DAILY (62.5 TO 25 MCG/INHALATION)
     Route: 055
     Dates: start: 20180220
  20. DULOXETINE HCL [Concomitant]
     Active Substance: DULOXETINE HYDROCHLORIDE
     Dosage: 60 MG, DAILY
     Route: 048
     Dates: start: 20150209
  21. PLAVIX [Concomitant]
     Active Substance: CLOPIDOGREL BISULFATE
     Dosage: 75 MG, DAILY
     Route: 048
  22. TYLENOL 8HR [Concomitant]
     Active Substance: ACETAMINOPHEN
     Dosage: UNK, AS NEEDED (1 TO 2 TABLETS EVERY 4 HOURS AS NEEDED)
     Route: 048
  23. ACETAMINOPHEN. [Concomitant]
     Active Substance: ACETAMINOPHEN
     Dosage: 325 MG, 1X/DAY (IN THE EVENING)
  24. ALLEGRA ALLERGY [Concomitant]
     Active Substance: FEXOFENADINE HYDROCHLORIDE
     Dosage: 180 MG, UNK
     Route: 048
     Dates: start: 20190219
  25. ASPIRIN. [Concomitant]
     Active Substance: ASPIRIN
     Dosage: 81 MG, UNK
  26. VITAMIN D [Concomitant]
     Active Substance: VITAMIN D NOS
     Indication: VITAMIN D DEFICIENCY
     Dosage: 3000 IU, DAILY
  27. NAPROSYN [Concomitant]
     Active Substance: NAPROXEN
     Dosage: 500 MG, AS NEEDED (1 TABLET EVERY 12 HOUR)
     Route: 048
  28. PRALUENT [Concomitant]
     Active Substance: ALIROCUMAB
     Dosage: 75 MG, UNK (EVERY 2 WEEKS)
     Route: 058
     Dates: start: 20190102
  29. TESTOSTERONE CYPIONATE. [Concomitant]
     Active Substance: TESTOSTERONE CYPIONATE
     Dosage: 0.2 ML, UNK
     Route: 030
     Dates: start: 20190409
  30. VITAMIN B COMPLEX COX [Concomitant]
     Dosage: UNK
  31. BIOTIN [Concomitant]
     Active Substance: BIOTIN
     Dosage: 6000 MG, DAILY
     Route: 048
  32. FIBER [Concomitant]
     Active Substance: PSYLLIUM HUSK
     Dosage: 1250 MG, 1X/DAY (2 EVERY MORNING)
     Route: 048
  33. METOPROLOL SUCCINATE. [Concomitant]
     Active Substance: METOPROLOL SUCCINATE
     Dosage: 25 MG, 1X/DAY
     Route: 048
  34. MIRALAX [Concomitant]
     Active Substance: POLYETHYLENE GLYCOL 3350
     Dosage: UNK
     Route: 048

REACTIONS (2)
  - Application site pruritus [Unknown]
  - Application site pain [Unknown]
